FAERS Safety Report 4774366-7 (Version None)
Quarter: 2005Q3

REPORT INFORMATION
  Report Type: 
  Country: None (occurrence: None)
  Receive Date: 20050914
  Receipt Date: 20050404
  Transmission Date: 20060218
  Serious: Yes (Other)
  Sender: FDA-Public Use
  Company Number: 163-20785-05040048

PATIENT
  Age: 51 Year
  Sex: Female

DRUGS (4)
  1. THALOMID [Suspect]
     Indication: MULTIPLE MYELOMA
     Dosage: 100 MG, DAILY, ORAL
     Route: 048
     Dates: start: 20050309
  2. DEXAMETHASONE [Suspect]
     Indication: MULTIPLE MYELOMA
     Dosage: 40 MG, QD IN PULSED DOSES, ORAL
     Route: 048
     Dates: start: 20050317
  3. VINCRISTINE [Suspect]
     Indication: MULTIPLE MYELOMA
     Dates: start: 20050317
  4. ADRIAMYCIN PFS [Suspect]
     Indication: MULTIPLE MYELOMA
     Dates: start: 20050317

REACTIONS (1)
  - DEEP VEIN THROMBOSIS [None]
